FAERS Safety Report 8375046-1 (Version None)
Quarter: 2012Q2

REPORT INFORMATION
  Report Type: 
  Country: None (occurrence: None)
  Receive Date: 20120521
  Receipt Date: 20120511
  Transmission Date: 20120825
  Serious: Yes (Death, Hospitalization)
  Sender: FDA-Public Use
  Company Number: PH-BAXTER-2012BAX005407

PATIENT
  Sex: Female

DRUGS (5)
  1. DIANEAL PD-2 W/ DEXTROSE 1.5% [Suspect]
     Route: 033
     Dates: start: 20070401
  2. MORIAMIN                           /00583901/ [Concomitant]
     Route: 065
  3. FOLIC ACID [Concomitant]
     Route: 065
  4. FERROUS SULFATE TAB [Concomitant]
     Route: 065
  5. OMEPRAZOLE [Concomitant]
     Route: 065

REACTIONS (9)
  - PERITONITIS [None]
  - DECREASED APPETITE [None]
  - GASTROENTERITIS [None]
  - VOMITING [None]
  - PNEUMONIA [None]
  - DIARRHOEA [None]
  - HYPOTENSION [None]
  - NAUSEA [None]
  - SEPTIC SHOCK [None]
